FAERS Safety Report 10309911 (Version 3)
Quarter: 2014Q3

REPORT INFORMATION
  Report Type: Spontaneous
  Country: US (occurrence: US)
  Receive Date: 20140717
  Receipt Date: 20140722
  Transmission Date: 20150326
  Serious: Yes (Hospitalization, Other)
  Sender: FDA-Public Use
  Company Number: US-DRREDDYS-USA/USA/14/0041721

PATIENT
  Age: 36 Year
  Sex: Female

DRUGS (3)
  1. TYLENOL COLD AND SINUS [Concomitant]
     Active Substance: ACETAMINOPHEN\PSEUDOEPHEDRINE
     Indication: NASOPHARYNGITIS
     Route: 065
  2. LEVOFLOXACIN TABLETS 500 MG [Suspect]
     Active Substance: LEVOFLOXACIN
     Indication: SINUSITIS
     Route: 048
     Dates: start: 20140708, end: 20140708
  3. TYLENOL COLD AND SINUS [Concomitant]
     Active Substance: ACETAMINOPHEN\PSEUDOEPHEDRINE
     Indication: SINUS DISORDER

REACTIONS (4)
  - Hypertension [Recovered/Resolved]
  - Tachycardia [Recovered/Resolved]
  - Drug screen positive [Unknown]
  - Disorientation [Recovered/Resolved]

NARRATIVE: CASE EVENT DATE: 20140708
